FAERS Safety Report 8094398-3 (Version None)
Quarter: 2012Q1

REPORT INFORMATION
  Report Type: 
  Country: None (occurrence: None)
  Receive Date: 20120130
  Receipt Date: 20120120
  Transmission Date: 20120608
  Serious: Yes (Hospitalization, Other)
  Sender: FDA-Public Use
  Company Number: US-BAYER-201028653NA

PATIENT
  Age: 32 Year
  Sex: Female
  Weight: 97.506 kg

DRUGS (7)
  1. NUVIGIL [Concomitant]
     Indication: DEPRESSION
  2. PROVIGAL [Concomitant]
     Indication: DEPRESSION
  3. DROSPIRENONE AND ETHINYL ESTRADIOL [Suspect]
     Indication: CONTRACEPTION
     Dosage: UNK
     Dates: start: 20090701, end: 20091001
  4. SPIRONOLACTONE [Concomitant]
     Indication: HORMONE REPLACEMENT THERAPY
     Dosage: 25 MG, UNK
     Dates: start: 20091001
  5. YASMIN [Suspect]
     Indication: CONTRACEPTION
     Route: 048
  6. AMPHETAMINE AND DEXTROAMPHETAMINE SALTS [Concomitant]
     Indication: NARCOLEPSY
     Dosage: UNK
     Dates: start: 20060101
  7. PROVIGAL [Concomitant]
     Indication: NARCOLEPSY
     Dosage: 200 MG, UNK

REACTIONS (3)
  - GALLBLADDER DISORDER [None]
  - PULMONARY EMBOLISM [None]
  - DEEP VEIN THROMBOSIS [None]
